FAERS Safety Report 26022987 (Version 1)
Quarter: 2025Q4

REPORT INFORMATION
  Report Type: Spontaneous
  Country: JP (occurrence: JP)
  Receive Date: 20251110
  Receipt Date: 20251110
  Transmission Date: 20260118
  Serious: Yes (Other)
  Sender: MERCK SHARP & DOHME LLC
  Company Number: JP-ONO-2025JP013811

PATIENT
  Age: 73 Year
  Sex: Male

DRUGS (11)
  1. SITAGLIPTIN [Suspect]
     Active Substance: SITAGLIPTIN
     Indication: Type 2 diabetes mellitus
     Dosage: UNK
     Route: 048
  2. METFORMIN HYDROCHLORIDE [Concomitant]
     Active Substance: METFORMIN HYDROCHLORIDE
     Dosage: UNK
     Route: 048
  3. DRIED FERROUS SULFATE [Concomitant]
     Dosage: UNK
     Route: 048
  4. TIRABRUTINIB HYDROCHLORIDE [Suspect]
     Active Substance: TIRABRUTINIB HYDROCHLORIDE
     Indication: Lymphoplasmacytoid lymphoma/immunocytoma
     Dosage: 480 MG
     Route: 048
     Dates: end: 20250918
  5. TIRABRUTINIB HYDROCHLORIDE [Suspect]
     Active Substance: TIRABRUTINIB HYDROCHLORIDE
     Indication: Lymphoplasmacytoid lymphoma/immunocytoma
     Dosage: 320 MG
     Route: 048
  6. TIRABRUTINIB HYDROCHLORIDE [Suspect]
     Active Substance: TIRABRUTINIB HYDROCHLORIDE
     Indication: Lymphoplasmacytoid lymphoma/immunocytoma
     Dosage: UNK
     Route: 048
     Dates: start: 20251015
  7. BENDAMUSTINE HYDROCHLORIDE [Concomitant]
     Active Substance: BENDAMUSTINE HYDROCHLORIDE
     Indication: Waldenstrom^s macroglobulinaemia
     Dosage: UNK
     Route: 065
  8. RITUXIMAB [Concomitant]
     Active Substance: RITUXIMAB
     Indication: Waldenstrom^s macroglobulinaemia
     Dosage: UNK
     Route: 065
  9. GLIMEPIRIDE [Concomitant]
     Active Substance: GLIMEPIRIDE
     Dosage: UNK
     Route: 048
  10. MAGNESIUM OXIDE [Concomitant]
     Active Substance: MAGNESIUM OXIDE
     Dosage: UNK
     Route: 048
  11. DAPAGLIFLOZIN PROPANEDIOL [Concomitant]
     Active Substance: DAPAGLIFLOZIN PROPANEDIOL
     Dosage: UNK
     Route: 048

REACTIONS (5)
  - Oesophageal candidiasis [Recovered/Resolved]
  - Sinusitis fungal [Unknown]
  - Infusion related reaction [Unknown]
  - Infusion related reaction [Unknown]
  - Infusion related reaction [Unknown]

NARRATIVE: CASE EVENT DATE: 20220901
